FAERS Safety Report 18172050 (Version 5)
Quarter: 2020Q4

REPORT INFORMATION
  Report Type: Report from Study
  Country: None (occurrence: US)
  Receive Date: 20200820
  Receipt Date: 20201115
  Transmission Date: 20210113
  Serious: Yes (Hospitalization, Other)
  Sender: FDA-Public Use
  Company Number: US-ABBVIE-20K-163-3432963-00

PATIENT
  Sex: Female
  Weight: 43.58 kg

DRUGS (4)
  1. RINVOQ [Suspect]
     Active Substance: UPADACITINIB
     Route: 048
     Dates: start: 202005, end: 20201109
  2. RISPERDAL [Concomitant]
     Active Substance: RISPERIDONE
     Indication: PRODUCT USED FOR UNKNOWN INDICATION
  3. RINVOQ [Suspect]
     Active Substance: UPADACITINIB
     Indication: RHEUMATOID ARTHRITIS
     Route: 048
     Dates: end: 202005
  4. FOSAMAX [Concomitant]
     Active Substance: ALENDRONATE SODIUM
     Indication: OSTEOARTHRITIS

REACTIONS (23)
  - Headache [Recovered/Resolved]
  - Arthralgia [Not Recovered/Not Resolved]
  - Adhesion [Unknown]
  - Erythema [Not Recovered/Not Resolved]
  - Rheumatoid arthritis [Not Recovered/Not Resolved]
  - Osteolysis [Not Recovered/Not Resolved]
  - Hospitalisation [Recovering/Resolving]
  - Partial seizures [Recovered/Resolved]
  - Drug ineffective [Unknown]
  - Sinus congestion [Not Recovered/Not Resolved]
  - Pain in extremity [Unknown]
  - Gastric ulcer [Recovering/Resolving]
  - Chest injury [Recovering/Resolving]
  - Paranasal sinus discomfort [Not Recovered/Not Resolved]
  - Fatigue [Unknown]
  - Joint stiffness [Not Recovered/Not Resolved]
  - Nerve compression [Unknown]
  - Musculoskeletal chest pain [Recovering/Resolving]
  - Ocular discomfort [Unknown]
  - Osteoporosis [Not Recovered/Not Resolved]
  - Confusional state [Recovered/Resolved]
  - Joint swelling [Not Recovered/Not Resolved]
  - Somnolence [Recovered/Resolved]

NARRATIVE: CASE EVENT DATE: 2020
